FAERS Safety Report 6268077-9 (Version None)
Quarter: 2009Q3

REPORT INFORMATION
  Report Type: 
  Country: None (occurrence: None)
  Receive Date: 20090713
  Receipt Date: 20090702
  Transmission Date: 20100115
  Serious: Yes (Death, Other)
  Sender: FDA-Public Use
  Company Number: 2008-00661

PATIENT
  Age: 49 Year
  Sex: Male
  Weight: 76 kg

DRUGS (10)
  1. VELCADE [Suspect]
     Indication: MULTIPLE MYELOMA
     Dosage: 2.20 MG, INTRAVENOUS
     Route: 042
     Dates: start: 20071112, end: 20071122
  2. DEXAMETHASONE [Concomitant]
  3. FAMOTIDINE [Concomitant]
  4. METHYCOBAL (MECOBALAMIN) [Concomitant]
  5. GLUCOBAY [Concomitant]
  6. PRAVASTATIN [Concomitant]
  7. ALLOPURINOL [Concomitant]
  8. MAGNESIUM OXIDE (MAGNESIUM OXIDE) [Concomitant]
  9. CIPROFLOXACIN HCL [Concomitant]
  10. DIFLUCAN [Concomitant]

REACTIONS (4)
  - ANAEMIA [None]
  - CHEST DISCOMFORT [None]
  - DISEASE PROGRESSION [None]
  - MULTIPLE MYELOMA [None]
